FAERS Safety Report 6766485-0 (Version None)
Quarter: 2010Q2

REPORT INFORMATION
  Report Type: 
  Country: None (occurrence: None)
  Receive Date: 20100611
  Receipt Date: 20100322
  Transmission Date: 20101027
  Serious: Yes (Hospitalization, Other)
  Sender: FDA-Public Use
  Company Number: US-BAYER-200929025NA

PATIENT
  Age: 19 Year
  Sex: Female
  Weight: 69 kg

DRUGS (4)
  1. YAZ [Suspect]
     Indication: CONTRACEPTION
     Route: 048
     Dates: start: 20080819, end: 20081124
  2. YASMIN [Suspect]
     Indication: ORAL CONTRACEPTION
     Route: 048
     Dates: start: 20080819, end: 20081124
  3. DOXY TAB [Concomitant]
     Route: 048
     Dates: start: 20080818
  4. LO/OVRAL-28 [Concomitant]
     Indication: MENSTRUAL CYCLE MANAGEMENT
     Dates: start: 20081125

REACTIONS (11)
  - ABDOMINAL PAIN [None]
  - ABDOMINAL PAIN UPPER [None]
  - ASTHENIA [None]
  - BILIARY COLIC [None]
  - CHOLECYSTITIS [None]
  - CHOLELITHIASIS [None]
  - INJURY [None]
  - METRORRHAGIA [None]
  - NAUSEA [None]
  - PAIN [None]
  - VOMITING [None]
